FAERS Safety Report 10552174 (Version 1)
Quarter: 2014Q4

REPORT INFORMATION
  Report Type: Spontaneous
  Country: US (occurrence: US)
  Receive Date: 20141029
  Receipt Date: 20141029
  Transmission Date: 20150529
  Serious: No
  Sender: FDA-Public Use
  Company Number: US-GLAXOSMITHKLINE-US2014GSK009500

PATIENT
  Age: 49 Year
  Sex: Male

DRUGS (2)
  1. MEKINIST [Suspect]
     Active Substance: TRAMETINIB DIMETHYL SULFOXIDE
     Indication: PLASMA CELL MYELOMA
     Dosage: 2 MG, QD
     Route: 048
     Dates: start: 201408, end: 20140912
  2. MULTIPLE DRUGS [Concomitant]
     Active Substance: UNSPECIFIED INGREDIENT

REACTIONS (3)
  - Rash [Recovering/Resolving]
  - Pyrexia [Recovered/Resolved]
  - Rash pustular [Recovering/Resolving]

NARRATIVE: CASE EVENT DATE: 20140807
